FAERS Safety Report 23935657 (Version 1)
Quarter: 2024Q2

REPORT INFORMATION
  Report Type: Spontaneous
  Country: ES (occurrence: ES)
  Receive Date: 20240604
  Receipt Date: 20240604
  Transmission Date: 20240716
  Serious: Yes (Hospitalization)
  Sender: FDA-Public Use
  Company Number: None

PATIENT
  Age: 80 Year
  Sex: Male

DRUGS (4)
  1. ATORVASTATIN\EZETIMIBE [Suspect]
     Active Substance: ATORVASTATIN\EZETIMIBE
     Indication: Hypercholesterolaemia
     Dosage: 1 TABLET/24H (30 TABLET)
     Route: 048
     Dates: start: 20230516, end: 20240515
  2. BEMPEDOIC ACID [Concomitant]
     Active Substance: BEMPEDOIC ACID
     Indication: Hypercholesterolaemia
     Dosage: 1 TABLET/24H (100 TABLET))
     Route: 048
     Dates: start: 20231117
  3. LOPID [Concomitant]
     Active Substance: GEMFIBROZIL
     Indication: Hypercholesterolaemia
     Dosage: 900 MILLIGRAM, Q24H (1 TABLET/24 H (30 TABLET))
     Route: 048
     Dates: start: 20190927, end: 20240515
  4. CLARITROMICINA ACCORD [Concomitant]
     Indication: Respiratory tract infection
     Dosage: 1 TABLET/12H FOR 7 DAYS (14 TABLET)
     Route: 048
     Dates: start: 20240311, end: 20240320

REACTIONS (4)
  - Rhabdomyolysis [Recovered/Resolved]
  - Hepatocellular injury [Recovering/Resolving]
  - Acute kidney injury [Recovering/Resolving]
  - Myositis [Recovering/Resolving]

NARRATIVE: CASE EVENT DATE: 20240410
